FAERS Safety Report 7389659-7 (Version None)
Quarter: 2011Q2

REPORT INFORMATION
  Report Type: 
  Country: None (occurrence: None)
  Receive Date: 20110401
  Receipt Date: 20110328
  Transmission Date: 20111010
  Serious: Yes (Other)
  Sender: FDA-Public Use
  Company Number: GB-PFIZER INC-2011039290

PATIENT
  Age: 95 Year
  Sex: Male

DRUGS (7)
  1. LISINOPRIL [Suspect]
     Dosage: 5 MG, 1X/DAY
     Route: 048
     Dates: start: 20060619
  2. LYRICA [Suspect]
     Indication: NEURALGIA
     Dosage: 25 MG, 2X/DAY, (25MG IN MORNING AND 25MG IN EVENING)
     Dates: start: 20110219
  3. OMEPRAZOLE [Concomitant]
     Indication: GASTROOESOPHAGEAL REFLUX DISEASE
     Dosage: 20 MG, 1X/DAY
     Dates: start: 20100308
  4. ACETAMINOPHEN [Concomitant]
     Indication: PAIN
     Dosage: 4 G, 1X/DAY
     Dates: start: 20070116
  5. LISINOPRIL [Suspect]
     Indication: HYPERTENSION
     Dosage: 2.5 MG, 1X/DAY
     Route: 048
     Dates: start: 20060522, end: 20060618
  6. FENTANYL [Concomitant]
     Indication: NEURALGIA
     Dosage: 25 MCG/H PATCHES
     Route: 061
     Dates: start: 20110308
  7. AMITRIPTYLINE [Concomitant]
     Indication: DEPRESSION
     Dosage: 10 MG, 1X/DAY
     Dates: start: 20110214, end: 20110215

REACTIONS (4)
  - DEPRESSION [None]
  - SYNCOPE [None]
  - HALLUCINATION [None]
  - FALL [None]
